FAERS Safety Report 6259803-3 (Version None)
Quarter: 2009Q3

REPORT INFORMATION
  Report Type: 
  Country: None (occurrence: None)
  Receive Date: 20090706
  Receipt Date: 20090706
  Transmission Date: 20100115
  Serious: Yes (Other)
  Sender: FDA-Public Use
  Company Number: None

PATIENT
  Weight: 61.2356 kg

DRUGS (1)
  1. SERTRALINE [Suspect]
     Indication: PANIC DISORDER
     Dosage: 100 MG DAILY PO
     Route: 048
     Dates: start: 20060628, end: 20060922

REACTIONS (2)
  - GASTROOESOPHAGEAL REFLUX DISEASE [None]
  - PRODUCT SUBSTITUTION ISSUE [None]
